FAERS Safety Report 12538626 (Version 2)
Quarter: 2016Q3

REPORT INFORMATION
  Report Type: Spontaneous
  Country: GB (occurrence: GB)
  Receive Date: 20160708
  Receipt Date: 20160812
  Transmission Date: 20161109
  Serious: Yes (Death, Other)
  Sender: FDA-Public Use
  Company Number: GB-BRISTOL-MYERS SQUIBB COMPANY-BMS-2016-053688

PATIENT
  Age: 74 Year
  Sex: Female
  Weight: 57 kg

DRUGS (2)
  1. VENTOLIN [Concomitant]
     Active Substance: ALBUTEROL SULFATE
     Indication: PRODUCT USED FOR UNKNOWN INDICATION
     Route: 065
  2. OPDIVO [Suspect]
     Active Substance: NIVOLUMAB
     Indication: NON-SMALL CELL LUNG CANCER RECURRENT
     Dosage: 170 MG, UNK
     Route: 042
     Dates: start: 20140813, end: 20160615

REACTIONS (11)
  - Respiratory failure [Fatal]
  - Hypoxia [Unknown]
  - Dyspnoea [Unknown]
  - Urosepsis [Fatal]
  - Pneumonia [Unknown]
  - Hypercapnia [Unknown]
  - C-reactive protein increased [Unknown]
  - Seizure [Unknown]
  - Pyuria [Unknown]
  - Chills [Unknown]
  - Somnolence [Unknown]

NARRATIVE: CASE EVENT DATE: 20160617
